FAERS Safety Report 12639447 (Version 4)
Quarter: 2016Q4

REPORT INFORMATION
  Report Type: Spontaneous
  Country: US (occurrence: US)
  Receive Date: 20160810
  Receipt Date: 20161122
  Transmission Date: 20170207
  Serious: Yes (Other)
  Sender: FDA-Public Use
  Company Number: US-009507513-1608USA005466

PATIENT
  Age: 31 Year
  Sex: Female
  Weight: 97.05 kg

DRUGS (2)
  1. NEXPLANON [Suspect]
     Active Substance: ETONOGESTREL
     Dosage: 1 IMPLANT, EVERY 3 YEARS
     Route: 059
     Dates: start: 201003, end: 20160714
  2. NEXPLANON [Suspect]
     Active Substance: ETONOGESTREL
     Indication: CONTRACEPTION
     Dosage: 1 IMPLANT, UNK
     Route: 059
     Dates: end: 201003

REACTIONS (6)
  - Device breakage [Recovered/Resolved]
  - Breast cancer [Unknown]
  - Incorrect drug administration duration [Unknown]
  - Implant site paraesthesia [Unknown]
  - Difficulty removing drug implant [Recovered/Resolved]
  - Implant site hypoaesthesia [Unknown]

NARRATIVE: CASE EVENT DATE: 201003
